FAERS Safety Report 9894851 (Version 3)
Quarter: 2014Q1

REPORT INFORMATION
  Report Type: Report from Study
  Country: US (occurrence: US)
  Receive Date: 20140213
  Receipt Date: 20140228
  Transmission Date: 20141002
  Serious: Yes (Death)
  Sender: FDA-Public Use
  Company Number: US-ABBVIE-10P-163-0693910-00

PATIENT
  Age: 38 Year
  Sex: Male
  Weight: 70.37 kg

DRUGS (3)
  1. HUMIRA [Suspect]
     Indication: PSORIASIS
     Route: 058
     Dates: start: 20080331, end: 20080331
  2. HUMIRA [Suspect]
     Route: 058
     Dates: start: 20080414, end: 20100428
  3. VERDESO [Concomitant]
     Indication: PSORIASIS
     Dosage: FOAM
     Route: 061
     Dates: start: 200910, end: 200910

REACTIONS (9)
  - Acute myocardial infarction [Fatal]
  - Sudden death [Fatal]
  - Coronary artery occlusion [Fatal]
  - Arteriosclerosis [Fatal]
  - Cardiovascular disorder [Fatal]
  - Paraesthesia [Fatal]
  - Chest pain [Fatal]
  - Coronary artery thrombosis [Fatal]
  - Psoriasis [Unknown]
